FAERS Safety Report 23176893 (Version 2)
Quarter: 2023Q4

REPORT INFORMATION
  Report Type: Report from Study
  Country: DK (occurrence: None)
  Receive Date: 20231113
  Receipt Date: 20231114
  Transmission Date: 20240110
  Serious: Yes (Hospitalization)
  Sender: FDA-Public Use
  Company Number: DK-ROCHE-3263393

PATIENT
  Age: 79 Year
  Sex: Female
  Weight: 65.9 kg

DRUGS (34)
  1. GLOFITAMAB [Suspect]
     Active Substance: GLOFITAMAB
     Indication: B-cell lymphoma
     Dosage: START DATE OF MOST RECENT DOSE 10 MG OF GLOFITAMAB PRIOR TO SAE: 04/JAN/2023 AT 12:45 PM TO 5:20 PM
     Route: 042
     Dates: start: 20221228
  2. OBINUTUZUMAB [Suspect]
     Active Substance: OBINUTUZUMAB
     Indication: B-cell lymphoma
     Dosage: START DATE OF MOST RECENT DOSE 10 MG OF OBINUTUZUMAB PRIOR TO SAE:21/DEC/2022 AT 12:05 PM TO 4:46 PM
     Route: 042
     Dates: start: 20221221, end: 20221221
  3. FLUDEOXYGLUCOSE F-18 [Suspect]
     Active Substance: FLUDEOXYGLUCOSE F-18
     Indication: B-cell lymphoma
     Dosage: START DATE OF MOST RECENT DOSE 35 ML OF FLUORODEOXYGLUCOSE 18F (FDG PET TRACER) PRIOR TO SAE: 24/NOV
     Route: 042
     Dates: start: 20221124
  4. FUROSEMIDE [Concomitant]
     Active Substance: FUROSEMIDE
     Indication: Oedema peripheral
     Route: 048
     Dates: start: 20230111, end: 20230118
  5. FUROSEMIDE [Concomitant]
     Active Substance: FUROSEMIDE
     Route: 048
     Dates: start: 20230104, end: 20230111
  6. ACETAMINOPHEN [Concomitant]
     Active Substance: ACETAMINOPHEN
     Indication: Cytokine release syndrome
     Route: 048
     Dates: start: 20221229, end: 20221229
  7. ACETAMINOPHEN [Concomitant]
     Active Substance: ACETAMINOPHEN
     Route: 048
     Dates: start: 20221221, end: 20221221
  8. ACETAMINOPHEN [Concomitant]
     Active Substance: ACETAMINOPHEN
     Route: 048
     Dates: start: 20221228, end: 20221228
  9. ACETAMINOPHEN [Concomitant]
     Active Substance: ACETAMINOPHEN
     Route: 048
     Dates: start: 20230104, end: 20230104
  10. ACETAMINOPHEN [Concomitant]
     Active Substance: ACETAMINOPHEN
     Route: 048
     Dates: start: 20230111, end: 20230111
  11. ACETAMINOPHEN [Concomitant]
     Active Substance: ACETAMINOPHEN
     Route: 048
     Dates: start: 20221125
  12. CETIRIZINE [Concomitant]
     Active Substance: CETIRIZINE HYDROCHLORIDE
     Route: 048
     Dates: start: 20221221, end: 20221221
  13. CETIRIZINE [Concomitant]
     Active Substance: CETIRIZINE HYDROCHLORIDE
     Route: 048
     Dates: start: 20221228, end: 20221228
  14. CETIRIZINE [Concomitant]
     Active Substance: CETIRIZINE HYDROCHLORIDE
     Route: 048
     Dates: start: 20230104, end: 20230104
  15. CETIRIZINE [Concomitant]
     Active Substance: CETIRIZINE HYDROCHLORIDE
     Route: 048
     Dates: start: 20230111, end: 20230111
  16. DOMPERIDONE [Concomitant]
     Active Substance: DOMPERIDONE
     Route: 048
     Dates: start: 20221128
  17. APIXABAN [Concomitant]
     Active Substance: APIXABAN
     Route: 048
     Dates: start: 20221125
  18. PREDNISOLONE [Concomitant]
     Active Substance: PREDNISOLONE
     Indication: Lymphoma
     Route: 048
     Dates: start: 20221125, end: 20221221
  19. KALIUMCHLORID;MACROGOL 3350;NATRIUMCHLORID;NATRIUMHYDROGENCARBONAT [Concomitant]
  20. CYANOCOBALAMIN [Concomitant]
     Active Substance: CYANOCOBALAMIN
     Route: 048
     Dates: start: 20220210
  21. LACTULOSE [Concomitant]
     Active Substance: LACTULOSE
  22. METFORMIN [Concomitant]
     Active Substance: METFORMIN HYDROCHLORIDE
     Route: 048
  23. CARVEDILOL [Concomitant]
     Active Substance: CARVEDILOL
     Route: 048
     Dates: start: 20220423
  24. PANTOPRAZOLE [Concomitant]
     Active Substance: PANTOPRAZOLE
     Route: 048
     Dates: start: 20190811
  25. INSULIN ASPART [Concomitant]
     Active Substance: INSULIN ASPART
     Route: 058
     Dates: start: 20200423
  26. FLUOCORTOLONE PIVALATE;LIDOCAINE HYDROCHLORIDE [Concomitant]
     Route: 054
     Dates: start: 20190225
  27. CALCIUM\VITAMIN D [Concomitant]
     Active Substance: CALCIUM\VITAMIN D
     Route: 048
     Dates: start: 20220815
  28. GLUCAGON [Concomitant]
     Active Substance: GLUCAGON\GLUCAGON HYDROCHLORIDE\WATER
     Route: 058
     Dates: start: 20200715
  29. MAGNESIUM [Concomitant]
     Active Substance: MAGNESIUM
  30. RAMIPRIL [Concomitant]
     Active Substance: RAMIPRIL
  31. SPIRONOLACTONE [Concomitant]
     Active Substance: SPIRONOLACTONE
  32. SULFAMETHOXAZOLE\TRIMETHOPRIM [Concomitant]
     Active Substance: SULFAMETHOXAZOLE\TRIMETHOPRIM
     Route: 048
  33. VALACYCLOVIR HYDROCHLORIDE [Concomitant]
     Active Substance: VALACYCLOVIR HYDROCHLORIDE
  34. ALLOPURINOL [Concomitant]
     Active Substance: ALLOPURINOL

REACTIONS (1)
  - Anaemia [Recovered/Resolved]

NARRATIVE: CASE EVENT DATE: 20230110
